FAERS Safety Report 23557090 (Version 1)
Quarter: 2024Q1

REPORT INFORMATION
  Report Type: Spontaneous
  Country: FR (occurrence: FR)
  Receive Date: 20240223
  Receipt Date: 20240223
  Transmission Date: 20240409
  Serious: Yes (Other)
  Sender: FDA-Public Use
  Company Number: None

PATIENT

DRUGS (4)
  1. ATRACURIUM [Suspect]
     Active Substance: ATRACURIUM
     Indication: General anaesthesia
     Dosage: 25 MILLIGRAM, SINGLE
     Route: 042
     Dates: start: 20240123, end: 20240123
  2. MIDAZOLAM [Suspect]
     Active Substance: MIDAZOLAM
     Indication: General anaesthesia
     Dosage: 2 MILLIGRAM, SINGLE
     Route: 042
     Dates: start: 20240123, end: 20240123
  3. PROPOFOL [Suspect]
     Active Substance: PROPOFOL
     Indication: General anaesthesia
     Dosage: UNKNOWN
     Route: 042
     Dates: start: 20240123, end: 20240123
  4. ULTIVA [Suspect]
     Active Substance: REMIFENTANIL HYDROCHLORIDE
     Indication: General anaesthesia
     Dosage: UNKNOWN
     Route: 042
     Dates: start: 20240123, end: 20240123

REACTIONS (1)
  - Unwanted awareness during anaesthesia [Recovered/Resolved]

NARRATIVE: CASE EVENT DATE: 20240123
